FAERS Safety Report 14147181 (Version 1)
Quarter: 2017Q4

REPORT INFORMATION
  Report Type: Spontaneous
  Country: AU (occurrence: AU)
  Receive Date: 20171031
  Receipt Date: 20171031
  Transmission Date: 20180321
  Serious: Yes (Other)
  Sender: FDA-Public Use
  Company Number: AU-MYLANLABS-2017M1067431

PATIENT
  Age: 60 Year
  Sex: Female

DRUGS (3)
  1. PHOLCODINE [Suspect]
     Active Substance: PHOLCODINE
     Indication: ANTITUSSIVE THERAPY
     Route: 065
  2. ROCURONIUM [Suspect]
     Active Substance: ROCURONIUM BROMIDE
     Indication: NEUROMUSCULAR BLOCKING THERAPY
     Route: 065
  3. SUCCINYLCHOLINE CHLORIDE. [Suspect]
     Active Substance: SUCCINYLCHOLINE CHLORIDE
     Indication: NEUROMUSCULAR BLOCKING THERAPY
     Route: 065

REACTIONS (2)
  - Therapeutic product cross-reactivity [Unknown]
  - Hypersensitivity [Unknown]
